FAERS Safety Report 9148326 (Version 1)
Quarter: 2013Q1

REPORT INFORMATION
  Report Type: Spontaneous
  Country: US (occurrence: None)
  Receive Date: 20130228
  Receipt Date: 20130228
  Transmission Date: 20140127
  Serious: Yes (Hospitalization)
  Sender: FDA-Public Use
  Company Number: None

PATIENT
  Age: 57 Year
  Sex: Male
  Weight: 88.91 kg

DRUGS (2)
  1. HUMIRA [Suspect]
     Indication: PSORIASIS
     Dosage: 80CC INITIAL IM
     Route: 030
     Dates: start: 20120801, end: 20121001
  2. HUMIRA [Suspect]
     Indication: ARTHRITIS
     Dosage: 80CC INITIAL IM
     Route: 030
     Dates: start: 20120801, end: 20121001

REACTIONS (5)
  - Lethargy [None]
  - Fatigue [None]
  - Cognitive disorder [None]
  - Speech disorder [None]
  - Muscle spasms [None]
